FAERS Safety Report 7782411-X (Version None)
Quarter: 2011Q3

REPORT INFORMATION
  Report Type: 
  Country: None (occurrence: None)
  Receive Date: 20110927
  Receipt Date: 20090407
  Transmission Date: 20111222
  Serious: Yes (Hospitalization, Other)
  Sender: FDA-Public Use
  Company Number: PHHY2010TW17668

PATIENT
  Sex: Male

DRUGS (3)
  1. GLEEVEC [Suspect]
     Dosage: 1 PILL PER DAY
  2. GLEEVEC [Suspect]
     Dosage: 2 PILLS PER DAY
  3. GLEEVEC [Suspect]
     Indication: GASTROINTESTINAL STROMAL TUMOUR
     Dosage: 200 MG, UNK
     Route: 048
     Dates: start: 20081028

REACTIONS (10)
  - PAIN IN EXTREMITY [None]
  - FACE OEDEMA [None]
  - DIABETES MELLITUS [None]
  - ANAEMIA [None]
  - GOUT [None]
  - HAEMOGLOBIN DECREASED [None]
  - FATIGUE [None]
  - ASTHENIA [None]
  - WHITE BLOOD CELL COUNT ABNORMAL [None]
  - PYREXIA [None]
